FAERS Safety Report 8533951-7 (Version None)
Quarter: 2012Q3

REPORT INFORMATION
  Report Type: 
  Country: None (occurrence: None)
  Receive Date: 20120724
  Receipt Date: 20120713
  Transmission Date: 20120928
  Serious: Yes (Hospitalization)
  Sender: FDA-Public Use
  Company Number: GB-JNJFOC-20120608561

PATIENT
  Sex: Male

DRUGS (8)
  1. NICORETTE [Suspect]
     Route: 062
  2. NICORETTE [Suspect]
     Indication: SMOKING CESSATION THERAPY
     Route: 062
     Dates: start: 20120413
  3. ACETAMINOPHEN AND CODEINE PHOSPHATE [Concomitant]
     Dosage: 30/50
     Route: 065
  4. OILATUM [Concomitant]
     Route: 065
  5. UNKNOWN MEDICATION [Concomitant]
     Route: 065
  6. BALNEUM [Concomitant]
     Route: 065
  7. NICOTINE POLACRILEX [Suspect]
     Indication: SMOKING CESSATION THERAPY
     Route: 002
  8. PROPRANOLOL [Concomitant]
     Route: 065

REACTIONS (1)
  - PSORIASIS [None]
